FAERS Safety Report 23717584 (Version 22)
Quarter: 2025Q4

REPORT INFORMATION
  Report Type: Report from Study
  Country: CN (occurrence: CN)
  Receive Date: 20240408
  Receipt Date: 20251209
  Transmission Date: 20260117
  Serious: Yes (Hospitalization, Other)
  Sender: ROCHE
  Company Number: CN-ROCHE-3538129

PATIENT
  Age: 72 Year
  Sex: Female
  Weight: 55 kg

DRUGS (130)
  1. KADCYLA [Suspect]
     Active Substance: ADO-TRASTUZUMAB EMTANSINE
     Indication: HER2 positive breast cancer
     Dosage: ON 18/MAR/2024, THE PATIENT RECEIVED MOST RECENT DOSE OF MEDICINAL PRODUCT PRIOR TO THE EVENT.?DATE OF MOST RECENT DOSE OF MEDICINAL PRODUCT PRIOR TO AE ONSET 02/AUG/2024.?DOSE OF LAST MEDICINAL PRODUCT ADMINISTERED PRIOR TO AE ONSET: 160MG?DATE OF MOST RECENT DOSE OF MEDICINAL PRODUCT PRIOR TO AE O
     Route: 041
     Dates: start: 20240317
  2. LORATADINE [Concomitant]
     Active Substance: LORATADINE
     Dosage: QN (EVERY NIGHT)
     Route: 048
  3. LORATADINE [Concomitant]
     Active Substance: LORATADINE
     Dosage: QN (EVERY NIGHT)
     Route: 048
     Dates: start: 20240326, end: 20240328
  4. LORATADINE [Concomitant]
     Active Substance: LORATADINE
     Dosage: QN (EVERY NIGHT)
     Route: 048
     Dates: start: 20240326, end: 20240328
  5. Potassium chloride sustained release tablets [Concomitant]
     Dates: start: 20240611, end: 20240615
  6. Potassium chloride sustained release tablets [Concomitant]
     Route: 042
     Dates: start: 20240430, end: 20240504
  7. Potassium chloride sustained release tablets [Concomitant]
     Route: 042
     Dates: start: 20240613, end: 20240615
  8. Potassium chloride sustained release tablets [Concomitant]
     Route: 042
     Dates: start: 20240708, end: 20240708
  9. Potassium chloride sustained release tablets [Concomitant]
     Route: 042
     Dates: start: 20240710, end: 20240713
  10. Potassium chloride sustained release tablets [Concomitant]
     Dates: start: 20240328, end: 20240330
  11. Potassium chloride sustained release tablets [Concomitant]
     Dates: start: 20240801, end: 20240802
  12. Potassium chloride sustained release tablets [Concomitant]
     Route: 042
     Dates: start: 20240802, end: 20240809
  13. Potassium chloride sustained release tablets [Concomitant]
     Route: 048
     Dates: start: 20240330, end: 20240429
  14. Potassium chloride sustained release tablets [Concomitant]
     Route: 048
     Dates: start: 20240429, end: 20240504
  15. Potassium chloride sustained release tablets [Concomitant]
     Route: 048
     Dates: start: 20240520, end: 20240526
  16. Potassium chloride sustained release tablets [Concomitant]
     Dosage: ST
     Route: 042
  17. Potassium chloride sustained release tablets [Concomitant]
     Dosage: ST
     Route: 042
     Dates: start: 20240822, end: 20240828
  18. Potassium chloride sustained release tablets [Concomitant]
     Dosage: ST
     Route: 042
     Dates: start: 20240825, end: 20240828
  19. Potassium chloride sustained release tablets [Concomitant]
     Dosage: ST
     Route: 048
     Dates: start: 20240828, end: 20240913
  20. Potassium chloride sustained release tablets [Concomitant]
     Route: 048
     Dates: start: 20210311, end: 20210330
  21. ESOMEPRAZOLE SODIUM [Concomitant]
     Active Substance: ESOMEPRAZOLE SODIUM
     Route: 042
     Dates: start: 20240409, end: 20240413
  22. ESOMEPRAZOLE SODIUM [Concomitant]
     Active Substance: ESOMEPRAZOLE SODIUM
     Route: 042
     Dates: start: 20240430, end: 20240504
  23. ESOMEPRAZOLE SODIUM [Concomitant]
     Active Substance: ESOMEPRAZOLE SODIUM
     Route: 042
     Dates: start: 20240522, end: 20240526
  24. ESOMEPRAZOLE SODIUM [Concomitant]
     Active Substance: ESOMEPRAZOLE SODIUM
     Route: 042
     Dates: start: 20240613, end: 20240615
  25. ESOMEPRAZOLE SODIUM [Concomitant]
     Active Substance: ESOMEPRAZOLE SODIUM
     Route: 042
     Dates: start: 20240708, end: 20240708
  26. ESOMEPRAZOLE SODIUM [Concomitant]
     Active Substance: ESOMEPRAZOLE SODIUM
     Route: 042
     Dates: start: 20240710, end: 20240713
  27. ESOMEPRAZOLE SODIUM [Concomitant]
     Active Substance: ESOMEPRAZOLE SODIUM
     Route: 042
     Dates: start: 20240317, end: 20240330
  28. ESOMEPRAZOLE SODIUM [Concomitant]
     Active Substance: ESOMEPRAZOLE SODIUM
     Route: 042
     Dates: start: 20240802, end: 20240808
  29. ESOMEPRAZOLE SODIUM [Concomitant]
     Active Substance: ESOMEPRAZOLE SODIUM
     Route: 042
     Dates: start: 20240328, end: 20240330
  30. DEXAMETHASONE SODIUM PHOSPHATE [Concomitant]
     Active Substance: DEXAMETHASONE SODIUM PHOSPHATE
     Route: 042
  31. DEXAMETHASONE SODIUM PHOSPHATE [Concomitant]
     Active Substance: DEXAMETHASONE SODIUM PHOSPHATE
     Route: 042
  32. tropisetron hydrochloride injection [Concomitant]
     Route: 048
     Dates: start: 20240615
  33. tropisetron hydrochloride injection [Concomitant]
     Route: 042
     Dates: start: 20240317
  34. Metoprolol tartarate tablets [Concomitant]
     Indication: Arrhythmia
     Route: 048
     Dates: end: 20240828
  35. Metoprolol tartarate tablets [Concomitant]
     Route: 048
     Dates: end: 20240917
  36. Metoprolol tartarate tablets [Concomitant]
     Route: 048
  37. magnesium isoglycyrrhizinate injection [Concomitant]
     Dates: start: 20240802, end: 20240809
  38. magnesium isoglycyrrhizinate injection [Concomitant]
     Route: 042
     Dates: start: 20240328, end: 20240330
  39. magnesium isoglycyrrhizinate injection [Concomitant]
     Route: 042
     Dates: start: 20240409, end: 20240413
  40. magnesium isoglycyrrhizinate injection [Concomitant]
     Route: 042
     Dates: start: 20240430, end: 20240504
  41. magnesium isoglycyrrhizinate injection [Concomitant]
     Route: 042
     Dates: start: 20240522, end: 20240526
  42. magnesium isoglycyrrhizinate injection [Concomitant]
     Route: 042
     Dates: start: 20240708, end: 20240711
  43. magnesium isoglycyrrhizinate injection [Concomitant]
     Route: 042
     Dates: start: 20240825, end: 20240828
  44. magnesium isoglycyrrhizinate injection [Concomitant]
     Route: 042
     Dates: start: 20240317, end: 20240330
  45. ondansetron hydrochloride injection [Concomitant]
     Route: 042
     Dates: start: 20240409, end: 20240413
  46. ondansetron hydrochloride injection [Concomitant]
     Route: 042
     Dates: start: 20240430, end: 20240503
  47. ondansetron hydrochloride injection [Concomitant]
     Route: 042
     Dates: start: 20240522, end: 20240526
  48. ondansetron hydrochloride injection [Concomitant]
     Route: 042
     Dates: start: 20240613, end: 20240615
  49. ondansetron hydrochloride injection [Concomitant]
     Route: 042
     Dates: start: 20240708, end: 20240708
  50. ondansetron hydrochloride injection [Concomitant]
     Route: 042
     Dates: start: 20240710, end: 20240713
  51. ondansetron hydrochloride injection [Concomitant]
     Route: 042
     Dates: start: 20240317, end: 20240320
  52. THYMALFASIN [Concomitant]
     Active Substance: THYMALFASIN
     Route: 058
     Dates: start: 20230403, end: 20230409
  53. THYMALFASIN [Concomitant]
     Active Substance: THYMALFASIN
     Route: 058
     Dates: start: 20230424, end: 20230430
  54. THYMALFASIN [Concomitant]
     Active Substance: THYMALFASIN
     Route: 058
     Dates: start: 20230526, end: 20230601
  55. THYMALFASIN [Concomitant]
     Active Substance: THYMALFASIN
     Route: 058
     Dates: start: 20230613, end: 20230619
  56. THYMALFASIN [Concomitant]
     Active Substance: THYMALFASIN
     Route: 058
     Dates: start: 20230717, end: 20230723
  57. THYMALFASIN [Concomitant]
     Active Substance: THYMALFASIN
     Route: 058
     Dates: start: 20230803, end: 20230809
  58. THYMALFASIN [Concomitant]
     Active Substance: THYMALFASIN
     Route: 058
     Dates: start: 20230824, end: 20230830
  59. THYMALFASIN [Concomitant]
     Active Substance: THYMALFASIN
     Route: 058
     Dates: start: 20230925, end: 20231001
  60. THYMALFASIN [Concomitant]
     Active Substance: THYMALFASIN
     Route: 058
     Dates: start: 20231023, end: 20231029
  61. THYMALFASIN [Concomitant]
     Active Substance: THYMALFASIN
     Route: 058
     Dates: start: 20231120, end: 20231126
  62. THYMALFASIN [Concomitant]
     Active Substance: THYMALFASIN
     Dosage: ST
     Route: 058
  63. THYMALFASIN [Concomitant]
     Active Substance: THYMALFASIN
     Dosage: ST
     Route: 058
  64. THYMALFASIN [Concomitant]
     Active Substance: THYMALFASIN
     Dosage: ST
     Route: 058
  65. THYMALFASIN [Concomitant]
     Active Substance: THYMALFASIN
     Dosage: BIW
     Route: 042
     Dates: start: 20240824, end: 20240828
  66. THYMALFASIN [Concomitant]
     Active Substance: THYMALFASIN
     Dosage: BIW
     Route: 042
     Dates: start: 20240828
  67. THYMALFASIN [Concomitant]
     Active Substance: THYMALFASIN
     Dosage: BIW
     Route: 042
     Dates: start: 20240809, end: 20240821
  68. THYMALFASIN [Concomitant]
     Active Substance: THYMALFASIN
     Dosage: BIW
     Route: 058
     Dates: start: 20240828, end: 20240909
  69. URSODIOL [Concomitant]
     Active Substance: URSODIOL
     Indication: Hepatic function abnormal
     Route: 048
     Dates: end: 20240330
  70. URSODIOL [Concomitant]
     Active Substance: URSODIOL
     Route: 048
     Dates: end: 20240408
  71. URSODIOL [Concomitant]
     Active Substance: URSODIOL
     Route: 048
     Dates: end: 20240430
  72. URSODIOL [Concomitant]
     Active Substance: URSODIOL
     Route: 048
     Dates: end: 20240520
  73. URSODIOL [Concomitant]
     Active Substance: URSODIOL
     Route: 048
  74. URSODIOL [Concomitant]
     Active Substance: URSODIOL
     Route: 048
     Dates: end: 20240615
  75. URSODIOL [Concomitant]
     Active Substance: URSODIOL
     Route: 048
     Dates: end: 20240713
  76. URSODIOL [Concomitant]
     Active Substance: URSODIOL
     Route: 048
     Dates: end: 20240913
  77. URSODIOL [Concomitant]
     Active Substance: URSODIOL
     Route: 048
  78. URSODIOL [Concomitant]
     Active Substance: URSODIOL
     Route: 048
     Dates: end: 20240428
  79. URSODIOL [Concomitant]
     Active Substance: URSODIOL
     Route: 048
     Dates: end: 20240413
  80. URSODIOL [Concomitant]
     Active Substance: URSODIOL
     Route: 048
     Dates: end: 20240713
  81. URSODIOL [Concomitant]
     Active Substance: URSODIOL
     Route: 048
     Dates: end: 20240330
  82. FUROSEMIDE [Concomitant]
     Active Substance: FUROSEMIDE
     Route: 042
     Dates: start: 20240430, end: 20240430
  83. FUROSEMIDE [Concomitant]
     Active Substance: FUROSEMIDE
     Route: 042
     Dates: start: 20240613, end: 20240613
  84. FUROSEMIDE [Concomitant]
     Active Substance: FUROSEMIDE
     Route: 042
     Dates: start: 20240710, end: 20240710
  85. FUROSEMIDE [Concomitant]
     Active Substance: FUROSEMIDE
     Route: 042
     Dates: start: 20240409, end: 20240409
  86. FUROSEMIDE [Concomitant]
     Active Substance: FUROSEMIDE
     Dosage: ST
     Route: 042
  87. amphotericin for injection [Concomitant]
     Route: 042
     Dates: start: 20240430, end: 20240430
  88. amphotericin for injection [Concomitant]
     Route: 042
     Dates: start: 20240522, end: 20240522
  89. amphotericin for injection [Concomitant]
     Route: 042
     Dates: start: 20240613, end: 20240613
  90. amphotericin for injection [Concomitant]
     Route: 042
     Dates: start: 20240409, end: 20240409
  91. LACTULOSE [Concomitant]
     Active Substance: LACTULOSE
     Route: 048
     Dates: start: 20240525, end: 20240525
  92. LACTULOSE [Concomitant]
     Active Substance: LACTULOSE
     Route: 048
     Dates: start: 20240504, end: 20240504
  93. Glycyrrhizic acid diamine enteric coated capsules [Concomitant]
     Route: 048
     Dates: start: 20240825, end: 20240828
  94. ZOLPIDEM TARTRATE [Concomitant]
     Active Substance: ZOLPIDEM TARTRATE
     Dosage: QN
     Route: 048
  95. ZOLPIDEM TARTRATE [Concomitant]
     Active Substance: ZOLPIDEM TARTRATE
     Dosage: QN
     Route: 048
     Dates: end: 20240903
  96. ZOLPIDEM TARTRATE [Concomitant]
     Active Substance: ZOLPIDEM TARTRATE
     Dosage: QN
     Route: 048
     Dates: end: 20240918
  97. ZOLPIDEM TARTRATE [Concomitant]
     Active Substance: ZOLPIDEM TARTRATE
     Dosage: QN
     Route: 048
     Dates: end: 20241014
  98. HERBALS [Concomitant]
     Active Substance: HERBALS
     Indication: Dyspepsia
     Route: 048
  99. HERBALS [Concomitant]
     Active Substance: HERBALS
     Indication: Gastritis erosive
     Route: 048
     Dates: end: 20240928
  100. HERBALS [Concomitant]
     Active Substance: HERBALS
     Dosage: 1 TABLET
     Route: 048
     Dates: end: 20240828
  101. amifostine for injection [Concomitant]
     Dosage: ST
     Route: 042
     Dates: start: 20240710, end: 20240710
  102. SODIUM CHLORIDE [Concomitant]
     Active Substance: SODIUM CHLORIDE
     Route: 058
  103. polyene phosphatidylcholine capsules [Concomitant]
     Indication: Hepatic function abnormal
     Route: 048
     Dates: start: 20240330, end: 202404
  104. polyene phosphatidylcholine capsules [Concomitant]
     Route: 048
     Dates: start: 20240408, end: 20240428
  105. polyene phosphatidylcholine capsules [Concomitant]
     Route: 048
     Dates: start: 20240430, end: 202405
  106. polyene phosphatidylcholine capsules [Concomitant]
     Route: 048
     Dates: start: 20240613, end: 20240615
  107. polyene phosphatidylcholine capsules [Concomitant]
     Route: 048
     Dates: start: 20240703, end: 20240713
  108. polyene phosphatidylcholine capsules [Concomitant]
     Route: 048
     Dates: start: 20240803, end: 20240913
  109. polyene phosphatidylcholine capsules [Concomitant]
     Route: 048
     Dates: start: 20240328, end: 20240330
  110. polyene phosphatidylcholine capsules [Concomitant]
     Route: 048
     Dates: start: 20240311, end: 20240330
  111. polyene phosphatidylcholine capsules [Concomitant]
     Route: 048
     Dates: start: 20240520, end: 20240526
  112. polyene phosphatidylcholine capsules [Concomitant]
     Route: 048
     Dates: start: 20240430, end: 20240504
  113. polyene phosphatidylcholine capsules [Concomitant]
     Route: 048
     Dates: start: 20240520, end: 20240526
  114. Robustine [Concomitant]
     Indication: Platelet count decreased
     Dosage: DOSE: 1 OTHER
     Route: 058
  115. POTASSIUM CHLORIDE [Concomitant]
     Active Substance: POTASSIUM CHLORIDE
     Indication: Hypokalaemia
     Route: 042
     Dates: start: 20240328, end: 20240330
  116. POTASSIUM CHLORIDE [Concomitant]
     Active Substance: POTASSIUM CHLORIDE
     Route: 042
     Dates: start: 20240317, end: 20240330
  117. POTASSIUM CHLORIDE [Concomitant]
     Active Substance: POTASSIUM CHLORIDE
     Route: 042
     Dates: start: 20240708, end: 20240708
  118. AMINO ACIDS, SOURCE UNSPECIFIED [Concomitant]
     Active Substance: AMINO ACIDS, SOURCE UNSPECIFIED
     Route: 042
  119. chlorpheniramine tablets [Concomitant]
     Route: 048
     Dates: start: 20240326, end: 20240328
  120. injectable methylprednisolone sodium succinate [Concomitant]
     Route: 042
     Dates: start: 20240808, end: 20240808
  121. injectable methylprednisolone sodium succinate [Concomitant]
     Route: 042
     Dates: start: 20240808, end: 20240808
  122. TEPRENONE [Concomitant]
     Active Substance: TEPRENONE
     Route: 048
     Dates: start: 20240615, end: 202407
  123. ESOMEPRAZOLE for Injection [Concomitant]
     Route: 042
     Dates: start: 20240409, end: 20240413
  124. ESOMEPRAZOLE for Injection [Concomitant]
     Route: 042
     Dates: start: 20240430, end: 20240504
  125. ESOMEPRAZOLE for Injection [Concomitant]
     Route: 042
     Dates: start: 20240522, end: 20240526
  126. ESOMEPRAZOLE for Injection [Concomitant]
     Route: 042
     Dates: start: 20240613, end: 20240615
  127. ESOMEPRAZOLE for Injection [Concomitant]
     Route: 042
     Dates: start: 20240708, end: 20240708
  128. ESOMEPRAZOLE for Injection [Concomitant]
     Route: 042
     Dates: start: 20240710, end: 20240713
  129. ESOMEPRAZOLE for Injection [Concomitant]
     Route: 042
     Dates: start: 20240328, end: 20240330
  130. Diammonium Glycyrrhizinate Enteric-coated Capsules [Concomitant]
     Route: 048
     Dates: start: 20240825, end: 20240828

REACTIONS (8)
  - Platelet count decreased [Not Recovered/Not Resolved]
  - Hypokalaemia [Not Recovered/Not Resolved]
  - Epistaxis [Not Recovered/Not Resolved]
  - Arrhythmia [Not Recovered/Not Resolved]
  - Sleep disorder [Recovered/Resolved]
  - Neutrophil count decreased [Not Recovered/Not Resolved]
  - White blood cell count decreased [Not Recovered/Not Resolved]
  - Sleep disorder [Recovered/Resolved]

NARRATIVE: CASE EVENT DATE: 20240319
